FAERS Safety Report 14173941 (Version 1)
Quarter: 2017Q4

REPORT INFORMATION
  Report Type: Spontaneous
  Country: US (occurrence: US)
  Receive Date: 20171109
  Receipt Date: 20171109
  Transmission Date: 20180321
  Serious: Yes (Hospitalization, Other)
  Sender: FDA-Public Use
  Company Number: US-ASTRAZENECA-2017SF13178

PATIENT
  Age: 914 Month
  Sex: Male

DRUGS (7)
  1. SEROQUEL [Suspect]
     Active Substance: QUETIAPINE FUMARATE
     Indication: DELUSION
     Dosage: UNKNOWN
     Route: 048
     Dates: start: 201710
  2. CARBIDOPA/LEVODOPA [Concomitant]
     Active Substance: CARBIDOPA\LEVODOPA
  3. SEROQUEL [Suspect]
     Active Substance: QUETIAPINE FUMARATE
     Indication: PARANOIA
     Dosage: UNKNOWN
     Route: 048
     Dates: start: 201710
  4. SEROQUEL [Suspect]
     Active Substance: QUETIAPINE FUMARATE
     Indication: HALLUCINATION
     Dosage: UNKNOWN
     Route: 048
     Dates: start: 201710
  5. HYDROCORTISONE. [Concomitant]
     Active Substance: HYDROCORTISONE
  6. FINASTERIDE. [Concomitant]
     Active Substance: FINASTERIDE
  7. BABY ASPIRIN [Concomitant]
     Active Substance: ASPIRIN

REACTIONS (10)
  - Communication disorder [Unknown]
  - Seizure [Unknown]
  - Abnormal behaviour [Recovered/Resolved]
  - Off label use [Unknown]
  - Product use in unapproved indication [Unknown]
  - Delusion [Unknown]
  - Catatonia [Unknown]
  - Hallucination [Unknown]
  - Blood pressure decreased [Unknown]
  - Paranoia [Unknown]

NARRATIVE: CASE EVENT DATE: 201710
